FAERS Safety Report 20162310 (Version 1)
Quarter: 2021Q4

REPORT INFORMATION
  Report Type: Report from Study
  Country: ES (occurrence: ES)
  Receive Date: 20211208
  Receipt Date: 20211208
  Transmission Date: 20220303
  Serious: Yes (Other)
  Sender: FDA-Public Use
  Company Number: ES-JNJFOC-20211165855

PATIENT

DRUGS (1)
  1. IMBRUVICA [Suspect]
     Active Substance: IBRUTINIB
     Indication: Chronic lymphocytic leukaemia
     Route: 048

REACTIONS (11)
  - Neutropenia [Unknown]
  - Thrombocytopenia [Unknown]
  - Neuropathy peripheral [Unknown]
  - Respiratory tract infection [Unknown]
  - Anaemia [Unknown]
  - Diarrhoea [Unknown]
  - Hypertension [Unknown]
  - Asthenia [Unknown]
  - Toxic skin eruption [Unknown]
  - Cardiac disorder [Unknown]
  - Toxicity to various agents [Unknown]
